FAERS Safety Report 13089186 (Version 1)
Quarter: 2017Q1

REPORT INFORMATION
  Report Type: Spontaneous
  Country: CN (occurrence: CN)
  Receive Date: 20170105
  Receipt Date: 20170105
  Transmission Date: 20170428
  Serious: Yes (Death)
  Sender: FDA-Public Use
  Company Number: CN-BAYER-2016-247276

PATIENT

DRUGS (2)
  1. RADIOTHERAPY [Concomitant]
     Active Substance: RADIATION THERAPY
  2. NEXAVAR [Suspect]
     Active Substance: SORAFENIB

REACTIONS (2)
  - Pleural effusion [None]
  - Death [Fatal]

NARRATIVE: CASE EVENT DATE: 20161229
